FAERS Safety Report 15021072 (Version 1)
Quarter: 2018Q2

REPORT INFORMATION
  Report Type: Spontaneous
  Country: US (occurrence: US)
  Receive Date: 20180618
  Receipt Date: 20180618
  Transmission Date: 20180711
  Serious: No
  Sender: FDA-Public Use
  Company Number: US-PFIZER INC-2018243666

PATIENT
  Age: 12 Year
  Sex: Male
  Weight: 86.17 kg

DRUGS (2)
  1. GENOTROPIN MQ [Suspect]
     Active Substance: SOMATROPIN
     Dosage: 0.8 MG, ALTERNATE DAY [INJECT 1 MG UNDER THE SKIN ALTERNATING WITH 0.8 MG, EVERY OTHER NIGHT]
  2. GENOTROPIN MQ [Suspect]
     Active Substance: SOMATROPIN
     Indication: GROWTH HORMONE DEFICIENCY
     Dosage: 1 MG, ALTERNATE DAY [INJECT 1 MG UNDER THE SKIN ALTERNATING WITH 0.8 MG, EVERY OTHER NIGHT]

REACTIONS (2)
  - Injection site irritation [Unknown]
  - Injection site erythema [Unknown]
